FAERS Safety Report 24879646 (Version 1)
Quarter: 2025Q1

REPORT INFORMATION
  Report Type: Report from Study
  Country: US (occurrence: US)
  Receive Date: 20250123
  Receipt Date: 20250123
  Transmission Date: 20250408
  Serious: Yes (Hospitalization)
  Sender: ACADIA PHARMACEUTICALS
  Company Number: US-ACADIA PHARMACEUTICALS INC.-ACA-2025-PIM-000463

PATIENT
  Sex: Male

DRUGS (14)
  1. NUPLAZID [Suspect]
     Active Substance: PIMAVANSERIN TARTRATE
     Indication: Parkinson^s disease
     Dosage: 34 MILLIGRAM, QD
     Route: 048
  2. ASPIRIN [Concomitant]
     Active Substance: ASPIRIN
  3. FLUDROCORTISONE [Concomitant]
     Active Substance: FLUDROCORTISONE
  4. FAMOTIDINE [Concomitant]
     Active Substance: FAMOTIDINE
  5. ATORVASTATIN [Concomitant]
     Active Substance: ATORVASTATIN
  6. HYDROCODONE [Concomitant]
     Active Substance: HYDROCODONE
  7. ONDANSETRON [Concomitant]
     Active Substance: ONDANSETRON
  8. QUETIAPINE [Concomitant]
     Active Substance: QUETIAPINE
  9. VITAMIN D3 [Concomitant]
     Active Substance: CHOLECALCIFEROL
  10. RASAGILINE [Concomitant]
     Active Substance: RASAGILINE
  11. SODIUM BICARBONATE [Concomitant]
     Active Substance: SODIUM BICARBONATE
  12. AMIODARONE [Concomitant]
     Active Substance: AMIODARONE
  13. RYTARY [Concomitant]
     Active Substance: CARBIDOPA\LEVODOPA
  14. LIDOCAINE [Concomitant]
     Active Substance: LIDOCAINE

REACTIONS (2)
  - Hospitalisation [Unknown]
  - Intentional dose omission [Unknown]
